FAERS Safety Report 23996724 (Version 1)
Quarter: 2024Q2

REPORT INFORMATION
  Report Type: Spontaneous
  Country: BG (occurrence: BG)
  Receive Date: 20240620
  Receipt Date: 20240620
  Transmission Date: 20240715
  Serious: Yes (Congenital Anomaly, Other)
  Sender: FDA-Public Use
  Company Number: BG-GLAXOSMITHKLINE-BG2024GSK075709

PATIENT

DRUGS (2)
  1. LAMOTRIGINE [Suspect]
     Active Substance: LAMOTRIGINE
     Indication: Depression
     Dosage: 200 MG, QD
     Route: 064
  2. SERTRALINE [Suspect]
     Active Substance: SERTRALINE HYDROCHLORIDE
     Indication: Depression
     Dosage: 25 MG, QD
     Route: 064

REACTIONS (9)
  - Ductus arteriosus stenosis foetal [Recovering/Resolving]
  - Respiratory failure [Recovering/Resolving]
  - Right ventricular dilatation [Recovering/Resolving]
  - Pulmonary hypertension [Recovered/Resolved]
  - Tricuspid valve incompetence [Recovering/Resolving]
  - Cardiomegaly [Recovering/Resolving]
  - Apgar score low [Recovering/Resolving]
  - Premature baby [Unknown]
  - Foetal exposure during pregnancy [Unknown]
